FAERS Safety Report 21456875 (Version 1)
Quarter: 2022Q4

REPORT INFORMATION
  Report Type: Report from Study
  Country: IT (occurrence: IT)
  Receive Date: 20221014
  Receipt Date: 20221014
  Transmission Date: 20230113
  Serious: Yes (Hospitalization, Other)
  Sender: FDA-Public Use
  Company Number: None

PATIENT

DRUGS (6)
  1. THIOGUANINE ANHYDROUS [Suspect]
     Active Substance: THIOGUANINE ANHYDROUS
     Indication: Acute lymphocytic leukaemia
     Dosage: 100 MG/DIE
     Route: 048
     Dates: start: 20220801, end: 20220815
  2. CYTARABINE [Suspect]
     Active Substance: CYTARABINE
     Indication: Acute lymphocytic leukaemia
     Dosage: 122 MG/DIE DA GIORNO 03/08 A GIORNO 06/08/2022 122 MG/DIE DA GIORNO 10/08 A GIORNO 13/08/2022
     Route: 042
     Dates: start: 20220803, end: 20220806
  3. CYTARABINE [Suspect]
     Active Substance: CYTARABINE
     Dosage: 122 MG/DIE DA GIORNO 03/08 A GIORNO 06/08/2022 122 MG/DIE DA GIORNO 10/08 A GIORNO 13/08/2022
     Route: 042
     Dates: start: 20220810, end: 20220813
  4. VINCRISTINE [Suspect]
     Active Substance: VINCRISTINE
     Indication: Acute lymphocytic leukaemia
     Dosage: 48 MG/DIE
     Route: 042
     Dates: start: 20220725, end: 20220725
  5. CYCLOPHOSPHAMIDE [Suspect]
     Active Substance: CYCLOPHOSPHAMIDE
     Indication: Acute lymphocytic leukaemia
     Dosage: 800 MG/DIE
     Route: 042
     Dates: start: 20220801, end: 20220801
  6. METHOTREXATE SODIUM [Suspect]
     Active Substance: METHOTREXATE SODIUM
     Indication: Acute lymphocytic leukaemia
     Dosage: 12 MG/DIE IN DATA 03/08 E 10/08/2022
     Route: 037
     Dates: start: 20220803, end: 20220810

REACTIONS (8)
  - Febrile neutropenia [Recovered/Resolved]
  - Leukopenia [Not Recovered/Not Resolved]
  - Blood bilirubin increased [Recovered/Resolved]
  - Pancytopenia [Recovering/Resolving]
  - Thrombocytopenia [Recovered/Resolved]
  - Hypogammaglobulinaemia [Not Recovered/Not Resolved]
  - Alanine aminotransferase increased [Not Recovered/Not Resolved]
  - Stomatitis [Recovered/Resolved]

NARRATIVE: CASE EVENT DATE: 20220801
